FAERS Safety Report 8055256-3 (Version None)
Quarter: 2012Q1

REPORT INFORMATION
  Report Type: 
  Country: None (occurrence: None)
  Receive Date: 20120119
  Receipt Date: 20120106
  Transmission Date: 20120608
  Serious: Yes (Life-Threatening)
  Sender: FDA-Public Use
  Company Number: FR-ASTELLAS-2012US000367

PATIENT
  Sex: Female

DRUGS (1)
  1. AMBISOME [Suspect]
     Indication: BRONCHOPULMONARY ASPERGILLOSIS
     Dosage: 150 MG, UID/QD
     Route: 042
     Dates: start: 20111028

REACTIONS (4)
  - SYNCOPE [None]
  - PULSE ABSENT [None]
  - SKIN TEST NEGATIVE [None]
  - IMMEDIATE POST-INJECTION REACTION [None]
